FAERS Safety Report 20167340 (Version 1)
Quarter: 2021Q4

REPORT INFORMATION
  Report Type: Spontaneous
  Country: US (occurrence: None)
  Receive Date: 20211208
  Receipt Date: 20211208
  Transmission Date: 20220303
  Serious: Yes (Hospitalization)
  Sender: FDA-Public Use
  Company Number: None

PATIENT
  Age: 74 Year
  Sex: Male

DRUGS (1)
  1. CASIRIVIMAB\IMDEVIMAB [Suspect]
     Active Substance: CASIRIVIMAB\IMDEVIMAB
     Indication: COVID-19 treatment
     Dosage: FREQUENCY : ONCE;?
     Route: 042
     Dates: start: 20210423, end: 20210423

REACTIONS (7)
  - Nausea [None]
  - Oxygen saturation decreased [None]
  - Fibrin D dimer increased [None]
  - C-reactive protein increased [None]
  - Pneumonia viral [None]
  - Hypoxia [None]
  - Serum ferritin increased [None]

NARRATIVE: CASE EVENT DATE: 20210423
